FAERS Safety Report 24888996 (Version 1)
Quarter: 2025Q1

REPORT INFORMATION
  Report Type: Spontaneous
  Country: US (occurrence: US)
  Receive Date: 20250127
  Receipt Date: 20250127
  Transmission Date: 20250408
  Serious: Yes (Death, Life-Threatening, Hospitalization, Other)
  Sender: CHEPLAPHARM
  Company Number: US-CHEPLA-2025001030

PATIENT
  Age: 43 Year
  Sex: Male

DRUGS (2)
  1. CAPECITABINE [Suspect]
     Active Substance: CAPECITABINE
     Indication: Rectal adenocarcinoma
     Dosage: 2500 MG ORALLY TWICE A DAY FOR 14 DAYS ON AND 7 DAYS OFF EVERY 21 DAYS
     Route: 048
     Dates: start: 20240502
  2. OXALIPLATIN [Suspect]
     Active Substance: OXALIPLATIN
     Indication: Rectal adenocarcinoma
     Route: 042
     Dates: start: 20240420

REACTIONS (5)
  - Infection [Fatal]
  - Neutropenia [Unknown]
  - Septic shock [Unknown]
  - Diabetic ketoacidosis [Unknown]
  - Thrombocytopenia [Unknown]

NARRATIVE: CASE EVENT DATE: 20240503
